FAERS Safety Report 9997400 (Version 1)
Quarter: 2014Q1

REPORT INFORMATION
  Report Type: Spontaneous
  Country: US (occurrence: US)
  Receive Date: 20140311
  Receipt Date: 20140311
  Transmission Date: 20141002
  Serious: No
  Sender: FDA-Public Use
  Company Number: US-GLAXOSMITHKLINE-A1041457A

PATIENT
  Age: 65 Year
  Sex: Male

DRUGS (1)
  1. NICORETTE OTC 2MG [Suspect]
     Indication: EX-TOBACCO USER
     Dates: end: 20130912

REACTIONS (5)
  - Oesophageal pain [Recovered/Resolved]
  - Intentional drug misuse [Recovered/Resolved]
  - Nicotine dependence [Recovering/Resolving]
  - Drug administration error [Unknown]
  - Accidental exposure to product [Unknown]
